FAERS Safety Report 4351613-7 (Version None)
Quarter: 2004Q2

REPORT INFORMATION
  Report Type: 
  Country: None (occurrence: None)
  Receive Date: 20040503
  Receipt Date: 20001107
  Transmission Date: 20050107
  Serious: Yes (Hospitalization)
  Sender: FDA-Public Use
  Company Number: GB-MERCK-00115157

PATIENT
  Age: 89 Year
  Sex: Male
  Weight: 66 kg

DRUGS (7)
  1. ACETAMINOPHEN AND CODEINE PHOSPHATE [Concomitant]
     Route: 048
     Dates: start: 19981001
  2. ATENOLOL [Concomitant]
     Route: 048
  3. DANTHRON AND POLOXAMER 188 [Concomitant]
     Route: 048
  4. ETIDRONATE DISODIUM [Concomitant]
     Route: 048
     Dates: start: 19990801
  5. RANITIDINE [Concomitant]
     Route: 048
  6. VIOXX [Suspect]
     Route: 048
     Dates: start: 20000518, end: 20000601
  7. VIOXX [Suspect]
     Route: 048
     Dates: start: 20000602, end: 20000707

REACTIONS (1)
  - DIARRHOEA [None]
